FAERS Safety Report 22073806 (Version 2)
Quarter: 2023Q1

REPORT INFORMATION
  Report Type: Spontaneous
  Country: CN (occurrence: CN)
  Receive Date: 20230308
  Receipt Date: 20230314
  Transmission Date: 20230418
  Serious: Yes (Hospitalization, Disabling)
  Sender: FDA-Public Use
  Company Number: CN-PFIZER INC-PV202300042389

PATIENT
  Age: 76 Year
  Sex: Male
  Weight: 60 kg

DRUGS (5)
  1. DIFLUCAN [Suspect]
     Active Substance: FLUCONAZOLE
     Indication: Anti-infective therapy
     Dosage: 200 MG, 1X/DAY
     Route: 041
     Dates: start: 20230217
  2. DIFLUCAN [Suspect]
     Active Substance: FLUCONAZOLE
     Dosage: 400 MG, 1X/DAY
     Route: 041
     Dates: start: 20230223, end: 20230302
  3. LINEZOLID [Concomitant]
     Active Substance: LINEZOLID
     Indication: Anti-infective therapy
     Dosage: 600 MG, 2X/DAY
     Route: 041
     Dates: start: 20230217
  4. CEFOPERAZONE/SULBACTAM SODIUM [Concomitant]
     Indication: Anti-infective therapy
     Dosage: 3 G, 2X/DAY
     Route: 041
     Dates: start: 20230217
  5. TIGECYCLINE [Concomitant]
     Active Substance: TIGECYCLINE
     Indication: Anti-infective therapy
     Dosage: 50 MG, 2X/DAY (100 MG LOADING)
     Dates: start: 20230217

REACTIONS (2)
  - Hepatic failure [Unknown]
  - Therapeutic product effect incomplete [Unknown]

NARRATIVE: CASE EVENT DATE: 20230227
